FAERS Safety Report 26191745 (Version 1)
Quarter: 2025Q4

REPORT INFORMATION
  Report Type: Report from Study
  Country: US (occurrence: US)
  Receive Date: 20251223
  Receipt Date: 20251223
  Transmission Date: 20260118
  Serious: Yes (Death, Hospitalization, Other)
  Sender: OTSUKA
  Company Number: US-MMM-Otsuka-HXD526O8

PATIENT
  Sex: Male

DRUGS (3)
  1. BREXPIPRAZOLE [Suspect]
     Active Substance: BREXPIPRAZOLE
     Indication: Dementia
     Dosage: 1 MG
     Route: 061
  2. BREXPIPRAZOLE [Suspect]
     Active Substance: BREXPIPRAZOLE
     Indication: Agitation
     Dosage: 2 MG
     Route: 065
  3. BREXPIPRAZOLE [Suspect]
     Active Substance: BREXPIPRAZOLE
     Indication: Parkinson^s disease

REACTIONS (4)
  - Dementia [Fatal]
  - Pneumonia aspiration [Fatal]
  - Fall [Not Recovered/Not Resolved]
  - Product use in unapproved indication [Unknown]

NARRATIVE: CASE EVENT DATE: 20250101
